FAERS Safety Report 25824560 (Version 2)
Quarter: 2025Q3

REPORT INFORMATION
  Report Type: Spontaneous
  Country: US (occurrence: US)
  Receive Date: 20250919
  Receipt Date: 20250930
  Transmission Date: 20251020
  Serious: No
  Sender: SANOFI AVENTIS
  Company Number: US-SA-2025SA280131

PATIENT
  Sex: Male
  Weight: 85 kg

DRUGS (2)
  1. DUPIXENT [Suspect]
     Active Substance: DUPILUMAB
     Indication: Neurodermatitis
     Dosage: 300 MG, QOW
     Route: 058
     Dates: end: 2025
  2. DUPIXENT [Suspect]
     Active Substance: DUPILUMAB
     Indication: Illness

REACTIONS (4)
  - Hypoaesthesia [Unknown]
  - Paraesthesia [Unknown]
  - Nerve compression [Unknown]
  - Vision blurred [Unknown]
